FAERS Safety Report 8180590-6 (Version None)
Quarter: 2012Q1

REPORT INFORMATION
  Report Type: 
  Country: None (occurrence: None)
  Receive Date: 20120302
  Receipt Date: 20120222
  Transmission Date: 20120608
  Serious: Yes (Hospitalization)
  Sender: FDA-Public Use
  Company Number: US-JNJFOC-20120211382

PATIENT
  Age: 29 Year
  Sex: Female

DRUGS (6)
  1. COGENTIN [Concomitant]
     Indication: PROPHYLAXIS
     Route: 048
     Dates: start: 20120216
  2. RISPERDAL CONSTA [Suspect]
     Indication: MAJOR DEPRESSION
     Route: 030
     Dates: start: 20120217
  3. RISPERDAL [Suspect]
     Dosage: 3MG/TABS/1MG IN AM AND 2MG IN PM/
     Route: 048
     Dates: start: 20120216
  4. REMERON [Concomitant]
     Indication: SLEEP DISORDER
     Route: 048
  5. NICOTINE [Concomitant]
     Indication: SMOKING CESSATION THERAPY
     Route: 065
  6. RISPERDAL [Suspect]
     Indication: MAJOR DEPRESSION
     Dosage: 3MG/TABS/1MG IN AM AND 2MG IN PM/ORAL
     Route: 048

REACTIONS (4)
  - ANXIETY [None]
  - TREATMENT NONCOMPLIANCE [None]
  - PSYCHOTIC DISORDER [None]
  - SUICIDAL IDEATION [None]
